APPROVED DRUG PRODUCT: BROMFENAC SODIUM
Active Ingredient: BROMFENAC SODIUM
Strength: EQ 0.09% ACID
Dosage Form/Route: SOLUTION/DROPS;OPHTHALMIC
Application: A203395 | Product #001 | TE Code: AT2
Applicant: SENTISS AG
Approved: Jan 22, 2014 | RLD: No | RS: No | Type: RX